FAERS Safety Report 7433420-1 (Version None)
Quarter: 2011Q2

REPORT INFORMATION
  Report Type: 
  Country: None (occurrence: None)
  Receive Date: 20110422
  Receipt Date: 20110414
  Transmission Date: 20111010
  Serious: Yes (Congenital Anomaly, Other)
  Sender: FDA-Public Use
  Company Number: AU-CEPHALON-2011001902

PATIENT
  Sex: Male
  Weight: 3 kg

DRUGS (2)
  1. CLOMIPRAMINE [Concomitant]
     Route: 064
  2. MODAVIGIL [Suspect]
     Route: 064

REACTIONS (3)
  - HAEMANGIOMA [None]
  - PREMATURE BABY [None]
  - HYPOSPADIAS [None]
